FAERS Safety Report 25867487 (Version 2)
Quarter: 2025Q4

REPORT INFORMATION
  Report Type: Report from Study
  Country: US (occurrence: US)
  Receive Date: 20251001
  Receipt Date: 20251217
  Transmission Date: 20260117
  Serious: Yes (Hospitalization, Other)
  Sender: ABBVIE
  Company Number: US-ABBVIE-6482771

PATIENT
  Sex: Male

DRUGS (1)
  1. IMBRUVICA [Suspect]
     Active Substance: IBRUTINIB
     Indication: Chronic lymphocytic leukaemia
     Dosage: 420 UNIT DOSAGE FORM
     Route: 048

REACTIONS (6)
  - Pulmonary oedema [Not Recovered/Not Resolved]
  - Pericardial effusion [Unknown]
  - White blood cell count abnormal [Unknown]
  - Pericarditis [Unknown]
  - Pleurisy [Unknown]
  - Emotional disorder [Unknown]
